FAERS Safety Report 7710269-3 (Version None)
Quarter: 2011Q3

REPORT INFORMATION
  Report Type: 
  Country: None (occurrence: None)
  Receive Date: 20110825
  Receipt Date: 20110818
  Transmission Date: 20111222
  Serious: Yes (Hospitalization)
  Sender: FDA-Public Use
  Company Number: US-BRISTOL-MYERS SQUIBB COMPANY-15202138

PATIENT
  Age: 61 Year
  Sex: Male
  Weight: 99 kg

DRUGS (12)
  1. AMIODARONE HCL [Concomitant]
     Route: 065
  2. LIPITOR [Concomitant]
     Route: 065
  3. PEMETREXED DISODIUM [Suspect]
     Indication: NON-SMALL CELL LUNG CANCER
     Dosage: 2ND INF ON 09JUL2010.
     Route: 042
     Dates: start: 20100617, end: 20100709
  4. COUMADIN [Concomitant]
     Route: 065
  5. LEVOTHYROXINE SODIUM [Concomitant]
     Route: 065
  6. NORCO [Concomitant]
     Dosage: 1DF=5/325 (UNITS NOS)
     Route: 065
  7. PREDNISONE [Concomitant]
     Route: 065
  8. DIGOXIN [Concomitant]
     Route: 065
  9. CETUXIMAB [Suspect]
     Indication: NON-SMALL CELL LUNG CANCER
     Dosage: 3RD INF ON 09JUL2010.
     Route: 042
     Dates: start: 20100617, end: 20100709
  10. LEXAPRO [Concomitant]
     Route: 065
  11. TOPROL-XL [Concomitant]
     Route: 065
  12. CARBOPLATIN [Suspect]
     Indication: NON-SMALL CELL LUNG CANCER
     Dosage: 2ND INF ON 09JUL2010.
     Route: 042
     Dates: start: 20100617, end: 20100709

REACTIONS (1)
  - HYPOTENSION [None]
